FAERS Safety Report 6480136-4 (Version None)
Quarter: 2009Q4

REPORT INFORMATION
  Report Type: 
  Country: None (occurrence: None)
  Receive Date: 20091208
  Receipt Date: 20091123
  Transmission Date: 20100525
  Serious: Yes (Other)
  Sender: FDA-Public Use
  Company Number: FR-BAXTER-2009BH018392

PATIENT
  Age: 49 Year
  Sex: Male
  Weight: 67 kg

DRUGS (7)
  1. EXTRANEAL [Suspect]
     Indication: PERITONEAL DIALYSIS
     Route: 033
  2. EXTRANEAL [Suspect]
     Route: 033
  3. EXTRANEAL [Suspect]
     Route: 033
  4. GLUCOSE ISOTONIC SOLUTION [Suspect]
     Indication: PERITONEAL DIALYSIS
     Route: 033
     Dates: start: 20091101
  5. CANDESARTAN CILEXETIL [Concomitant]
     Indication: HYPERTENSION
     Route: 065
  6. AMLOR [Concomitant]
     Indication: HYPERTENSION
     Route: 065
  7. ISOTONIC GLUCOSE [Concomitant]
     Indication: PERITONEAL DIALYSIS
     Route: 033

REACTIONS (4)
  - ABDOMINAL PAIN [None]
  - PERITONEAL CLOUDY EFFLUENT [None]
  - PERITONEAL DISORDER [None]
  - PERITONITIS [None]
